FAERS Safety Report 20617906 (Version 5)
Quarter: 2022Q2

REPORT INFORMATION
  Report Type: Spontaneous
  Country: US (occurrence: US)
  Receive Date: 20220321
  Receipt Date: 20220602
  Transmission Date: 20220721
  Serious: No
  Sender: FDA-Public Use
  Company Number: US-PFIZER INC-202200039159

PATIENT
  Age: 75 Year
  Sex: Female

DRUGS (1)
  1. IBRANCE [Suspect]
     Active Substance: PALBOCICLIB
     Indication: Breast cancer female
     Dosage: 125 MG, CYCLIC (3X7 UD TAB 21)

REACTIONS (5)
  - Neoplasm progression [Unknown]
  - White blood cell count decreased [Unknown]
  - Liver function test increased [Unknown]
  - Fatigue [Unknown]
  - Asthenia [Unknown]
